FAERS Safety Report 4938310-1 (Version None)
Quarter: 2006Q1

REPORT INFORMATION
  Report Type: 
  Country: None (occurrence: None)
  Receive Date: 20060309
  Receipt Date: 20060227
  Transmission Date: 20060701
  Serious: Yes (Hospitalization)
  Sender: FDA-Public Use
  Company Number: GB-GLAXOSMITHKLINE-B0413779A

PATIENT
  Age: 43 Year
  Sex: Male

DRUGS (2)
  1. BUPROPION HCL [Suspect]
     Indication: SMOKING CESSATION THERAPY
     Dosage: 150MG PER DAY
     Route: 048
     Dates: start: 20060120, end: 20060203
  2. IBUPROFEN [Concomitant]
     Indication: ARTHRALGIA
     Dosage: 400MG PER DAY
     Route: 048
     Dates: start: 20060120, end: 20060203

REACTIONS (2)
  - ERYTHEMA [None]
  - PUSTULAR PSORIASIS [None]
